FAERS Safety Report 9099519 (Version 1)
Quarter: 2013Q1

REPORT INFORMATION
  Report Type: Spontaneous
  Country: GB (occurrence: GB)
  Receive Date: 20130214
  Receipt Date: 20130214
  Transmission Date: 20140127
  Serious: Yes (Hospitalization, Other)
  Sender: FDA-Public Use
  Company Number: PHFR2012GB006542

PATIENT
  Age: 66 None
  Sex: Female

DRUGS (5)
  1. CLOZARIL [Suspect]
     Indication: SCHIZOPHRENIA, PARANOID TYPE
     Dosage: 500 MG,
     Route: 048
     Dates: start: 20051129
  2. DIAZEPAM [Concomitant]
     Indication: ANXIETY
     Dosage: 12 MG,
     Route: 048
  3. ARIPIPRAZOLE [Concomitant]
     Dosage: 10 MG,
     Route: 048
  4. LAXIDO [Concomitant]
     Indication: CONSTIPATION
     Dosage: UNK
  5. SODIUM VALPROATE [Concomitant]
     Indication: AFFECTIVE DISORDER
     Dosage: 500 MG,

REACTIONS (5)
  - Overdose [Recovered/Resolved]
  - Suicidal ideation [Recovering/Resolving]
  - Depression [Recovering/Resolving]
  - Mental impairment [Unknown]
  - Antipsychotic drug level increased [Unknown]
